FAERS Safety Report 9525382 (Version 2)
Quarter: 2013Q3

REPORT INFORMATION
  Report Type: Spontaneous
  Country: JP (occurrence: JP)
  Receive Date: 20130916
  Receipt Date: 20130926
  Transmission Date: 20140515
  Serious: Yes (Hospitalization)
  Sender: FDA-Public Use
  Company Number: JP-ASTRAZENECA-2013SE69149

PATIENT
  Age: 29 Year
  Sex: Male
  Weight: 64.5 kg

DRUGS (8)
  1. SEROQUEL [Suspect]
     Indication: PROPHYLAXIS
     Route: 048
     Dates: start: 20130802, end: 20130813
  2. SEROQUEL [Suspect]
     Indication: INSOMNIA
     Route: 048
     Dates: start: 20130802, end: 20130813
  3. SEROQUEL [Suspect]
     Indication: ALCOHOLISM
     Route: 048
     Dates: start: 20130802, end: 20130813
  4. DIAZEPAM [Suspect]
     Indication: PROPHYLAXIS
     Route: 048
     Dates: start: 20130802, end: 20130813
  5. DIAZEPAM [Suspect]
     Indication: ALCOHOLISM
     Route: 048
     Dates: start: 20130802, end: 20130813
  6. ALINAMIN-F [Concomitant]
     Indication: ALCOHOLISM
     Dates: start: 20130802, end: 20130813
  7. ALINAMIN-F [Concomitant]
     Indication: WERNICKE^S ENCEPHALOPATHY
     Dates: start: 20130802, end: 20130813
  8. LUNESTA [Concomitant]
     Indication: INSOMNIA
     Dates: start: 20130802

REACTIONS (3)
  - Drug eruption [Recovering/Resolving]
  - Sleep disorder due to general medical condition, insomnia type [Unknown]
  - Off label use [Unknown]
